FAERS Safety Report 22520838 (Version 2)
Quarter: 2023Q2

REPORT INFORMATION
  Report Type: Report from Study
  Country: CO (occurrence: CO)
  Receive Date: 20230605
  Receipt Date: 20230615
  Transmission Date: 20230721
  Serious: Yes (Other)
  Sender: FDA-Public Use
  Company Number: CO-KOREA IPSEN Pharma-2023-13240

PATIENT
  Age: 71 Year
  Sex: Female
  Weight: 50 kg

DRUGS (5)
  1. LANREOTIDE ACETATE [Suspect]
     Active Substance: LANREOTIDE ACETATE
     Indication: Acromegaly
     Dosage: 120 MG + 12 MG, 2 DOSES EVERY 28 DAYS
     Route: 058
     Dates: start: 20170901
  2. METOPROLOL [Concomitant]
     Active Substance: METOPROLOL
     Indication: Hypertension
     Dosage: ONE TABLET EACH 12 HOURS
     Route: 048
     Dates: start: 1999
  3. LINAGLIPTIN [Concomitant]
     Active Substance: LINAGLIPTIN
     Indication: Glucose tolerance impaired
     Dosage: ONE TABLET EACH DAY
     Route: 048
     Dates: start: 2020
  4. ATORVASTATIN [Concomitant]
     Active Substance: ATORVASTATIN
     Indication: Blood triglycerides abnormal
     Dosage: ONE TABLET EACH DAY
     Route: 048
     Dates: start: 2020
  5. DEXLANSOPRAZOLE [Concomitant]
     Active Substance: DEXLANSOPRAZOLE
     Indication: Gastritis
     Dosage: ONE TABLET EACH DAY
     Route: 048
     Dates: start: 2010

REACTIONS (10)
  - Rectal haemorrhage [Recovered/Resolved]
  - Radiotherapy [Not Recovered/Not Resolved]
  - Pituitary tumour [Not Recovered/Not Resolved]
  - Deafness unilateral [Not Recovered/Not Resolved]
  - Mouth haemorrhage [Recovered/Resolved]
  - Weight increased [Not Recovered/Not Resolved]
  - Body height decreased [Not Recovered/Not Resolved]
  - Off label use [Unknown]
  - Dry throat [Not Recovered/Not Resolved]
  - Gastritis [Recovered/Resolved]

NARRATIVE: CASE EVENT DATE: 20170901
